FAERS Safety Report 9522240 (Version 1)
Quarter: 2013Q3

REPORT INFORMATION
  Report Type: Spontaneous
  Country: US (occurrence: None)
  Receive Date: 20130911
  Receipt Date: 20130911
  Transmission Date: 20140515
  Serious: Yes (Other)
  Sender: FDA-Public Use
  Company Number: US-ZYDUS-002195

PATIENT
  Age: 76 Year
  Sex: Female

DRUGS (1)
  1. VENLAFAXINE [Suspect]

REACTIONS (11)
  - Status epilepticus [None]
  - Drug withdrawal syndrome [None]
  - Hypertension [None]
  - Gastroenteritis [None]
  - Dysarthria [None]
  - Vomiting [None]
  - Muscular weakness [None]
  - Emotional disorder [None]
  - Hallucination [None]
  - Drug ineffective [None]
  - Malabsorption [None]
